FAERS Safety Report 23713148 (Version 1)
Quarter: 2024Q2

REPORT INFORMATION
  Report Type: Spontaneous
  Country: JP (occurrence: None)
  Receive Date: 20240405
  Receipt Date: 20240405
  Transmission Date: 20240715
  Serious: Yes (Death, Other)
  Sender: FDA-Public Use
  Company Number: 2022A194443

PATIENT
  Age: 70 Year
  Sex: Male

DRUGS (3)
  1. LYNPARZA [Suspect]
     Active Substance: OLAPARIB
     Indication: Prostate cancer
     Dosage: DOSE UNKNOWN
     Route: 048
     Dates: start: 20220117, end: 20220505
  2. LYNPARZA [Suspect]
     Active Substance: OLAPARIB
     Indication: Prostate cancer
     Dosage: DOSE UNKNOWN
     Route: 048
     Dates: start: 202206, end: 202306
  3. LYNPARZA [Suspect]
     Active Substance: OLAPARIB
     Indication: Prostate cancer
     Dosage: DOSE UNKNOWN
     Route: 048
     Dates: start: 2023, end: 202308

REACTIONS (4)
  - Pneumonia aspiration [Fatal]
  - Pancytopenia [Unknown]
  - Anaemia [Recovered/Resolved]
  - Decreased appetite [Unknown]

NARRATIVE: CASE EVENT DATE: 20220505
